FAERS Safety Report 19963816 (Version 1)
Quarter: 2021Q4

REPORT INFORMATION
  Report Type: Spontaneous
  Country: US (occurrence: US)
  Receive Date: 20211013
  Receipt Date: 20211013
  Transmission Date: 20220303
  Serious: Yes (Life-Threatening, Disabling)
  Sender: FDA-Public Use
  Company Number: None

PATIENT
  Age: 56 Year
  Sex: Female
  Weight: 89.4 kg

DRUGS (1)
  1. ESCITALOPRAM [Suspect]
     Active Substance: ESCITALOPRAM OXALATE
     Indication: Major depression
     Dosage: ?          QUANTITY:1 DF DOSAGE FORM;
     Route: 048
     Dates: start: 20090122, end: 20090125

REACTIONS (2)
  - Suicidal ideation [None]
  - Disability [None]

NARRATIVE: CASE EVENT DATE: 20090122
